FAERS Safety Report 18474672 (Version 1)
Quarter: 2020Q4

REPORT INFORMATION
  Report Type: Spontaneous
  Country: US (occurrence: US)
  Receive Date: 20201106
  Receipt Date: 20201106
  Transmission Date: 20210114
  Serious: Yes (Hospitalization, Other)
  Sender: FDA-Public Use
  Company Number: US-PURDUE-USA-2020-0174911

PATIENT
  Sex: Male

DRUGS (4)
  1. OXYCONTIN [Suspect]
     Active Substance: OXYCODONE HYDROCHLORIDE
     Dosage: 80 MG, UNK
     Route: 048
  2. OXYCODONE HYDROCHLORIDE (SIMILAR TO NDA 22-272) [Suspect]
     Active Substance: OXYCODONE HYDROCHLORIDE
     Indication: PAIN
     Dosage: 15 MG, UNK
     Route: 048
  3. ENDOCET [Suspect]
     Active Substance: ACETAMINOPHEN\OXYCODONE HYDROCHLORIDE
     Indication: PAIN
     Dosage: 10/325
     Route: 065
  4. OXYCONTIN [Suspect]
     Active Substance: OXYCODONE HYDROCHLORIDE
     Indication: PAIN
     Dosage: 40 MG, UNK
     Route: 048

REACTIONS (13)
  - Myalgia [Unknown]
  - Anxiety [Unknown]
  - Drug dependence [Unknown]
  - Rectal injury [Unknown]
  - Deafness [Unknown]
  - Arthralgia [Unknown]
  - Constipation [Unknown]
  - Drug withdrawal syndrome [Unknown]
  - Coronary arterial stent insertion [Unknown]
  - Angioplasty [Unknown]
  - Colon injury [Unknown]
  - Unevaluable event [Unknown]
  - Insomnia [Unknown]
